FAERS Safety Report 9161468 (Version 2)
Quarter: 2013Q2

REPORT INFORMATION
  Report Type: Spontaneous
  Country: US (occurrence: US)
  Receive Date: 20130313
  Receipt Date: 20130419
  Transmission Date: 20140414
  Serious: No
  Sender: FDA-Public Use
  Company Number: US-009507513-1303USA005868

PATIENT
  Age: 32 Year
  Sex: Male

DRUGS (2)
  1. PEGINTRON [Suspect]
     Indication: HEPATITIS C
     Dosage: UNK
     Dates: start: 20130308
  2. RIBAVIRIN [Suspect]
     Indication: HEPATITIS C
     Dosage: UNK
     Dates: start: 20130308

REACTIONS (7)
  - Pollakiuria [Unknown]
  - Chills [Unknown]
  - Chills [Unknown]
  - Myalgia [Unknown]
  - Insomnia [Unknown]
  - Cough [Unknown]
  - Cough [Unknown]
